FAERS Safety Report 24329969 (Version 1)
Quarter: 2024Q3

REPORT INFORMATION
  Report Type: Spontaneous
  Country: JP (occurrence: JP)
  Receive Date: 20240917
  Receipt Date: 20240917
  Transmission Date: 20241017
  Serious: Yes (Hospitalization)
  Sender: UNKNOWN
  Company Number: JP-MTPC-MTPC2024-0019233

PATIENT
  Age: 72 Year
  Sex: Male

DRUGS (4)
  1. ASPIRIN [Suspect]
     Active Substance: ASPIRIN
     Indication: Brain stem infarction
     Dosage: 100 MILLIGRAM, QD
     Route: 065
  2. CLOPIDOGREL [Suspect]
     Active Substance: CLOPIDOGREL BISULFATE
     Indication: Brain stem infarction
     Dosage: 75 MILLIGRAM, QD
     Route: 065
  3. EDOXABAN TOSYLATE [Suspect]
     Active Substance: EDOXABAN TOSYLATE
     Indication: Atrial fibrillation
     Dosage: 60 MILLIGRAM
     Route: 065
  4. EDARAVONE [Suspect]
     Active Substance: EDARAVONE
     Indication: Brain stem infarction
     Dosage: 60 MILLIGRAM, QD
     Route: 065

REACTIONS (2)
  - Atrial fibrillation [Unknown]
  - Hepatocellular carcinoma [Unknown]
